FAERS Safety Report 8589542 (Version 5)
Quarter: 2013Q2

REPORT INFORMATION
  Report Type: Spontaneous
  Country: US (occurrence: US)
  Receive Date: 20120531
  Receipt Date: 20130611
  Transmission Date: 20140414
  Serious: Yes (Other)
  Sender: FDA-Public Use
  Company Number: US-PFIZER INC-2012127677

PATIENT
  Age: 64 Year
  Sex: Female
  Weight: 63.49 kg

DRUGS (5)
  1. PRISTIQ [Suspect]
     Indication: POST-TRAUMATIC STRESS DISORDER
     Dosage: 50 MG, DAILY
     Dates: start: 2010
  2. PRISTIQ [Suspect]
     Indication: DEPRESSION
  3. CELEBREX [Suspect]
     Dosage: UNK
  4. SEROQUEL [Concomitant]
     Indication: ANXIETY
     Dosage: 350 MG, AS NEEDED
  5. SEROQUEL [Concomitant]
     Indication: MOOD SWINGS

REACTIONS (9)
  - Paranoia [Unknown]
  - Emotional disorder [Unknown]
  - Nasopharyngitis [Unknown]
  - Laryngitis [Unknown]
  - Tremor [Unknown]
  - Feeling abnormal [Unknown]
  - Memory impairment [Unknown]
  - Off label use [Unknown]
  - Drug ineffective for unapproved indication [Unknown]
